FAERS Safety Report 7061614-6 (Version None)
Quarter: 2010Q4

REPORT INFORMATION
  Report Type: 
  Country: None (occurrence: None)
  Receive Date: 20101026
  Receipt Date: 20101006
  Transmission Date: 20110411
  Serious: No
  Sender: FDA-Public Use
  Company Number: US-ABBOTT-10P-163-0677152-00

PATIENT
  Sex: Female
  Weight: 54.48 kg

DRUGS (5)
  1. LUPRON DEPOT [Suspect]
     Indication: ENDOMETRIOSIS
     Dates: start: 20100701
  2. MIRENA [Suspect]
     Indication: ENDOMETRIOSIS
     Route: 015
  3. MIRENA [Suspect]
     Indication: PAIN MANAGEMENT
  4. ESTROGEN SUPPLEMENT [Concomitant]
     Indication: PRODUCT USED FOR UNKNOWN INDICATION
     Dosage: DAILY
  5. CALCIUM [Concomitant]
     Indication: PRODUCT USED FOR UNKNOWN INDICATION
     Dosage: DAILY

REACTIONS (1)
  - MENORRHAGIA [None]
